FAERS Safety Report 10290565 (Version 1)
Quarter: 2014Q3

REPORT INFORMATION
  Report Type: Spontaneous
  Country: FR (occurrence: None)
  Receive Date: 20140708
  Receipt Date: 20140708
  Transmission Date: 20150326
  Serious: Yes (Other)
  Sender: FDA-Public Use
  Company Number: 7303569

PATIENT
  Age: 3 Year
  Sex: Female

DRUGS (1)
  1. LEVOTHYROX 75 (LEVOTHYROXINE SODIUM) (TABLET) (LEVOTHYROXINE SODIUM) [Suspect]
     Active Substance: LEVOTHYROXINE SODIUM
     Indication: PRODUCT USED FOR UNKNOWN INDICATION
     Route: 048
     Dates: start: 20140321, end: 20140321

REACTIONS (4)
  - Heart rate increased [None]
  - Poisoning [None]
  - Accidental overdose [None]
  - Blood pressure decreased [None]

NARRATIVE: CASE EVENT DATE: 20140321
